FAERS Safety Report 24232688 (Version 1)
Quarter: 2024Q3

REPORT INFORMATION
  Report Type: Spontaneous
  Country: US (occurrence: US)
  Receive Date: 20240821
  Receipt Date: 20240821
  Transmission Date: 20241016
  Serious: No
  Sender: RANBAXY
  Company Number: US-SUN PHARMACEUTICAL INDUSTRIES LTD-2024R1-440559

PATIENT
  Sex: Male

DRUGS (1)
  1. FEBUXOSTAT [Suspect]
     Active Substance: FEBUXOSTAT
     Indication: Gout
     Dosage: 80 MILLIGRAM ONCE DAILY
     Route: 065

REACTIONS (2)
  - Recalled product administered [Unknown]
  - Vomiting [Unknown]
